FAERS Safety Report 4282833-8 (Version None)
Quarter: 2004Q1

REPORT INFORMATION
  Report Type: 
  Country: None (occurrence: None)
  Receive Date: 20040130
  Receipt Date: 20030515
  Transmission Date: 20041129
  Serious: Yes (Hospitalization)
  Sender: FDA-Public Use
  Company Number: US-BRISTOL-MYERS SQUIBB COMPANY-12276028

PATIENT
  Age: 48 Year
  Sex: Female

DRUGS (2)
  1. SERZONE [Suspect]
     Route: 048
     Dates: end: 19961216
  2. KLONOPIN [Concomitant]
     Route: 048

REACTIONS (6)
  - AFFECTIVE DISORDER [None]
  - ANXIETY [None]
  - DEPRESSION [None]
  - EPISTAXIS [None]
  - PANIC DISORDER [None]
  - SUICIDAL IDEATION [None]
